FAERS Safety Report 13843356 (Version 2)
Quarter: 2017Q3

REPORT INFORMATION
  Report Type: Spontaneous
  Country: RS (occurrence: RS)
  Receive Date: 20170808
  Receipt Date: 20170814
  Transmission Date: 20171127
  Serious: Yes (Death, Hospitalization, Other)
  Sender: FDA-Public Use
  Company Number: RS-JNJFOC-20170802955

PATIENT
  Sex: Male

DRUGS (3)
  1. ERYNORM [Concomitant]
     Indication: HYPERTENSION
     Route: 065
  2. NORVASC [Concomitant]
     Active Substance: AMLODIPINE BESYLATE
     Indication: HYPERTENSION
     Route: 065
  3. ZYTIGA [Suspect]
     Active Substance: ABIRATERONE ACETATE
     Indication: PRODUCT USED FOR UNKNOWN INDICATION
     Route: 048

REACTIONS (7)
  - Erythropenia [Unknown]
  - Bladder perforation [Unknown]
  - Death [Fatal]
  - Acute kidney injury [Unknown]
  - Hepatic lesion [Unknown]
  - Leukopenia [Unknown]
  - Neutropenia [Unknown]
